FAERS Safety Report 5615814-X (Version None)
Quarter: 2008Q1

REPORT INFORMATION
  Report Type: 
  Country: None (occurrence: None)
  Receive Date: 20080201
  Receipt Date: 20080129
  Transmission Date: 20080703
  Serious: Yes (Life-Threatening, Other)
  Sender: FDA-Public Use
  Company Number: 2008SP000753

PATIENT
  Age: 31 Year
  Sex: Female

DRUGS (8)
  1. CELESTENE (BETAMETHASONE SODIUM PHOSPHAGE) (BETAMETHASONE SODIUM PHOSP [Suspect]
     Indication: NEONATAL RESPIRATORY DISTRESS SYNDROME
     Dosage: 12 MG;QD;IM
     Route: 030
     Dates: start: 20071122, end: 20071123
  2. NICARDIPINE HCL [Suspect]
     Indication: TOCOLYSIS
     Dosage: 2 MG;QH;IV; 4 MG;QH;IV
     Route: 042
     Dates: start: 20071123, end: 20071123
  3. NICARDIPINE HCL [Suspect]
     Indication: TOCOLYSIS
     Dosage: 2 MG;QH;IV; 4 MG;QH;IV
     Route: 042
     Dates: start: 20071123, end: 20071124
  4. ADALATE (NIFEDIPINE) [Suspect]
     Indication: TOCOLYSIS
     Dosage: 60 MG;QD;PO; 20 MG;QD
     Route: 048
     Dates: start: 20071122, end: 20071122
  5. ADALATE (NIFEDIPINE) [Suspect]
     Indication: TOCOLYSIS
     Dosage: 60 MG;QD;PO; 20 MG;QD
     Route: 048
     Dates: start: 20071123, end: 20071123
  6. ATOSIBAN (ATOSIBAN) [Suspect]
     Indication: TOCOLYSIS
     Dosage: 6.75 MG; 18 MG;QH;IV; 6 MG;QH;IV
     Route: 042
     Dates: start: 20071124, end: 20071125
  7. ATOSIBAN (ATOSIBAN) [Suspect]
     Indication: TOCOLYSIS
     Dosage: 6.75 MG; 18 MG;QH;IV; 6 MG;QH;IV
     Route: 042
     Dates: start: 20071124, end: 20071125
  8. ATOSIBAN (ATOSIBAN) [Suspect]
     Indication: TOCOLYSIS
     Dosage: 6.75 MG; 18 MG;QH;IV; 6 MG;QH;IV
     Route: 042
     Dates: start: 20071125, end: 20071125

REACTIONS (13)
  - ACUTE PULMONARY OEDEMA [None]
  - APGAR SCORE LOW [None]
  - DRUG EXPOSURE DURING PREGNANCY [None]
  - EJECTION FRACTION DECREASED [None]
  - FLUSHING [None]
  - HYPOXIA [None]
  - MULTIPLE PREGNANCY [None]
  - NO THERAPEUTIC RESPONSE [None]
  - OEDEMA PERIPHERAL [None]
  - PLEURAL EFFUSION [None]
  - PYREXIA [None]
  - RESPIRATORY DISTRESS [None]
  - TACHYPNOEA [None]
